FAERS Safety Report 14309913 (Version 2)
Quarter: 2018Q1

REPORT INFORMATION
  Report Type: Spontaneous
  Country: FR (occurrence: FR)
  Receive Date: 20171220
  Receipt Date: 20180307
  Transmission Date: 20180509
  Serious: Yes (Other)
  Sender: FDA-Public Use
  Company Number: FR-PFIZER INC-2017535461

PATIENT
  Age: 63 Year
  Sex: Female
  Weight: 49 kg

DRUGS (4)
  1. CARBOPLATIN. [Suspect]
     Active Substance: CARBOPLATIN
     Indication: OVARIAN CANCER
     Dosage: 1140 MG, WEEKLY
     Route: 042
     Dates: start: 20170224, end: 20170720
  2. PACLITAXEL KABI [Interacting]
     Active Substance: PACLITAXEL
     Indication: OVARIAN CANCER
     Dosage: 114 MG, WEEKLY
     Route: 042
     Dates: start: 20170224, end: 20170728
  3. ZARZIO [Concomitant]
     Active Substance: FILGRASTIM
     Dosage: 3 INJECTIONS
     Route: 065
     Dates: start: 20170720
  4. AVASTIN [Interacting]
     Active Substance: BEVACIZUMAB
     Indication: OVARIAN CANCER
     Dosage: 45 MG, WEEKLY
     Route: 041
     Dates: start: 20170728, end: 20170728

REACTIONS (4)
  - Anaemia [Recovered/Resolved]
  - Drug interaction [Unknown]
  - Epistaxis [Recovered/Resolved]
  - Thrombocytopenia [Recovered/Resolved]

NARRATIVE: CASE EVENT DATE: 20170801
